FAERS Safety Report 21503852 (Version 1)
Quarter: 2022Q4

REPORT INFORMATION
  Report Type: Spontaneous
  Country: JP (occurrence: JP)
  Receive Date: 20221025
  Receipt Date: 20221025
  Transmission Date: 20230112
  Serious: No
  Sender: FDA-Public Use
  Company Number: JP-SAMOHPHARM-2020004941

PATIENT

DRUGS (12)
  1. CARBAGLU [Suspect]
     Active Substance: CARGLUMIC ACID
     Indication: Methylmalonic aciduria
     Dosage: 240 MILLIGRAM/KILOGRAM, DAILY
  2. CARBAGLU [Suspect]
     Active Substance: CARGLUMIC ACID
     Indication: Hyperammonaemia
  3. LEVOCARNITINE [Concomitant]
     Active Substance: LEVOCARNITINE
     Indication: Methylmalonic aciduria
     Dosage: 107 MILLIGRAM/KILOGRAM, QD
     Route: 042
  4. LEVOCARNITINE [Concomitant]
     Active Substance: LEVOCARNITINE
     Indication: Hyperammonaemia
  5. VITAMIN B12 [Concomitant]
     Active Substance: CYANOCOBALAMIN
     Indication: Methylmalonic aciduria
     Dosage: 1 MILLIGRAM/KILOGRAM, QD
     Route: 042
  6. VITAMIN B12 [Concomitant]
     Active Substance: CYANOCOBALAMIN
     Indication: Hyperammonaemia
  7. ARGININE [Concomitant]
     Active Substance: ARGININE
     Indication: Methylmalonic aciduria
     Dosage: 288 MILLIGRAM/KILOGRAM, QD
     Route: 042
  8. ARGININE [Concomitant]
     Active Substance: ARGININE
     Indication: Hyperammonaemia
  9. DOPAMINE [DOPAMINE HYDROCHLORIDE] [Concomitant]
     Indication: Product used for unknown indication
     Dosage: UNK
  10. DOBUTREX [Concomitant]
     Active Substance: DOBUTAMINE HYDROCHLORIDE
     Indication: Product used for unknown indication
     Dosage: UNK
  11. HYDROCORTISONE [Concomitant]
     Active Substance: HYDROCORTISONE
     Indication: Product used for unknown indication
     Dosage: UNK
  12. LINEZOLID [Concomitant]
     Active Substance: LINEZOLID
     Indication: Product used for unknown indication
     Dosage: UNK

REACTIONS (4)
  - Hypotension [Recovered/Resolved]
  - Metabolic acidosis [Recovered/Resolved]
  - Erythema [Recovered/Resolved]
  - Blood lactic acid increased [Recovered/Resolved]
